FAERS Safety Report 24885024 (Version 1)
Quarter: 2025Q1

REPORT INFORMATION
  Report Type: Spontaneous
  Country: CN (occurrence: CN)
  Receive Date: 20250124
  Receipt Date: 20250124
  Transmission Date: 20250408
  Serious: Yes (Other)
  Sender: KYOWA
  Company Number: CN-KYOWAKIRIN-2025KK001138

PATIENT

DRUGS (1)
  1. FARESTON [Suspect]
     Active Substance: TOREMIFENE CITRATE
     Indication: Breast cancer
     Dosage: 60 MG (60 MG,1 IN 1 D)
     Route: 048
     Dates: start: 20230521, end: 20250107

REACTIONS (1)
  - Organising pneumonia [Unknown]
